FAERS Safety Report 4414411-1 (Version None)
Quarter: 2004Q3

REPORT INFORMATION
  Report Type: 
  Country: None (occurrence: None)
  Receive Date: 20040701
  Receipt Date: 20030430
  Transmission Date: 20050211
  Serious: Yes (Hospitalization)
  Sender: FDA-Public Use
  Company Number: 03-MIT00001(0)

PATIENT
  Age: 47 Year
  Sex: Female

DRUGS (3)
  1. MITOMYCIN [Suspect]
     Indication: ANAL CANCER
     Dosage: 10 MG/M2 (DAY 1), INTRAVENOUS
     Route: 042
  2. FLUOROURACIL [Suspect]
     Dosage: 1000 MG/M2 (DAYS 1 THROUGH 4) CONTINUOUS INFUSION
     Route: 042
  3. DEXAMETHESONE [Concomitant]

REACTIONS (1)
  - RASH MACULO-PAPULAR [None]
